FAERS Safety Report 8388733-6 (Version None)
Quarter: 2012Q2

REPORT INFORMATION
  Report Type: 
  Country: None (occurrence: None)
  Receive Date: 20120528
  Receipt Date: 20120515
  Transmission Date: 20120825
  Serious: Yes (Other)
  Sender: FDA-Public Use
  Company Number: FR-BRISTOL-MYERS SQUIBB COMPANY-16624678

PATIENT
  Age: 31 Year
  Sex: Female

DRUGS (11)
  1. IFOSFAMIDE [Suspect]
     Indication: BURKITT'S LYMPHOMA
     Dosage: 1DF= 5G/M3
  2. VINCRISTINE [Suspect]
     Indication: BURKITT'S LYMPHOMA
  3. ETOPOSIDE [Suspect]
     Indication: BURKITT'S LYMPHOMA
     Route: 042
  4. NEUPOGEN [Suspect]
     Indication: BURKITT'S LYMPHOMA
  5. DOXORUBICIN HCL [Suspect]
     Indication: BURKITT'S LYMPHOMA
  6. CYCLOPHOSPHAMIDE [Suspect]
     Indication: BURKITT'S LYMPHOMA
  7. MESNA [Suspect]
     Indication: BURKITT'S LYMPHOMA
  8. METHOTREXATE [Suspect]
     Indication: BURKITT'S LYMPHOMA
  9. RITUXIMAB [Suspect]
     Indication: BURKITT'S LYMPHOMA
  10. CYTARABINE [Suspect]
     Indication: BURKITT'S LYMPHOMA
     Route: 037
  11. LEUCOVORIN CALCIUM [Suspect]
     Indication: BURKITT'S LYMPHOMA

REACTIONS (6)
  - VOMITING [None]
  - PREGNANCY [None]
  - LIVE BIRTH [None]
  - FEBRILE NEUTROPENIA [None]
  - EROSIVE OESOPHAGITIS [None]
  - OLIGOHYDRAMNIOS [None]
